FAERS Safety Report 12190894 (Version 3)
Quarter: 2016Q2

REPORT INFORMATION
  Report Type: Spontaneous
  Country: US (occurrence: US)
  Receive Date: 20160318
  Receipt Date: 20160531
  Transmission Date: 20160815
  Serious: Yes (Hospitalization)
  Sender: FDA-Public Use
  Company Number: US-PFIZER INC-2016101796

PATIENT
  Age: 68 Year
  Sex: Female
  Weight: 53 kg

DRUGS (25)
  1. MAALOX PLUS MIRACLE MOUTHWASH [Concomitant]
     Indication: ORAL PAIN
     Dosage: UNK UNK, 1X/DAY
  2. PROMETHAZINE [Concomitant]
     Active Substance: PROMETHAZINE\PROMETHAZINE HYDROCHLORIDE
     Indication: NAUSEA
     Dosage: 25 MG, AS NEEDED
  3. PREDNISONE. [Concomitant]
     Active Substance: PREDNISONE
     Dosage: 50 MG, AS NEEDED (FOR TESTS WITH IV CONTRAST DYE)
  4. POLYETHYLENE GLYCOL [Concomitant]
     Active Substance: POLYETHYLENE GLYCOLS
     Indication: CONSTIPATION
     Dosage: 17 G, AS NEEDED
  5. GUANFACINE. [Concomitant]
     Active Substance: GUANFACINE
     Indication: HYPERTENSION
     Dosage: 1 MG, 1X/DAY (BEDTIME)
     Route: 048
  6. DILAUDID [Concomitant]
     Active Substance: HYDROMORPHONE HYDROCHLORIDE
     Dosage: 4 MG, EVERY 4 HRS
  7. CHLORHEXIDINE [Concomitant]
     Active Substance: CHLORHEXIDINE
     Dosage: .12 %, DAILY
  8. FUROSEMIDE. [Concomitant]
     Active Substance: FUROSEMIDE
     Indication: JOINT SWELLING
     Dosage: 20 MG, AS NEEDED (TAKES WITH POTASSIUM REPLACEMENT)
     Route: 048
  9. HYDROMORPHONE [Concomitant]
     Active Substance: HYDROMORPHONE
     Indication: PAIN
     Dosage: 4 MG, AS NEEDED (EVERY 4 HOURS)
  10. COMPAZINE [Concomitant]
     Active Substance: PROCHLORPERAZINE MALEATE
     Indication: NAUSEA
     Dosage: 10 MG, AS NEEDED (EVERY 8 HOURS)
  11. METFORMIN HCL [Concomitant]
     Active Substance: METFORMIN HYDROCHLORIDE
     Indication: DIABETES MELLITUS
     Dosage: UNK UNK, DAILY (1000M)
     Route: 048
  12. INLYTA [Suspect]
     Active Substance: AXITINIB
     Dosage: 8 MG, 2X/DAY (1MG STRENGTH: 5MG TABLET AND THREE 1 MG TABLETS)
  13. CHLORHEXIDINE [Concomitant]
     Active Substance: CHLORHEXIDINE
     Dosage: .12 %, DAILY
  14. DIPHENHYDRAMINE. [Concomitant]
     Active Substance: DIPHENHYDRAMINE
     Indication: ORAL PAIN
     Dosage: UNK UNK, 3X/DAY
  15. MAALOX PLUS MIRACLE MOUTHWASH [Concomitant]
     Indication: ORAL DISCOMFORT
  16. INLYTA [Suspect]
     Active Substance: AXITINIB
     Indication: TONGUE NEOPLASM
     Dosage: 8 MG, 2X/DAY
     Dates: start: 201601
  17. MARINOL [Concomitant]
     Active Substance: DRONABINOL
     Dosage: 2.5 MG, 2X/DAY (BEFORE MEALS)
     Route: 048
  18. LABETALOL [Concomitant]
     Active Substance: LABETALOL\LABETALOL HYDROCHLORIDE
     Indication: HYPERTENSION
     Dosage: 100 MG, 2X/DAY
     Route: 048
  19. AMLODIPINE [Concomitant]
     Active Substance: AMLODIPINE BESYLATE
     Dosage: 2.5 MG, 2X/DAY
     Route: 048
  20. RAMIPRIL. [Concomitant]
     Active Substance: RAMIPRIL
     Dosage: 10 MG, 1X/DAY
     Route: 048
  21. CARAFATE [Concomitant]
     Active Substance: SUCRALFATE
     Indication: ABDOMINAL DISCOMFORT
     Dosage: 1 G, 4X/DAY
     Route: 048
  22. POTASSIUM CHLORIDE. [Concomitant]
     Active Substance: POTASSIUM CHLORIDE
     Dosage: 10 MEQ, AS NEEDED
     Route: 048
  23. INLYTA [Suspect]
     Active Substance: AXITINIB
     Indication: RENAL CELL CARCINOMA
     Dosage: 8 MG, 2X/DAY ( TOTAL TWICE A DAY)
     Route: 048
  24. MS CONTIN [Concomitant]
     Active Substance: MORPHINE SULFATE
     Dosage: 60 MG, 2X/DAY
  25. MORPHINE [Concomitant]
     Active Substance: MORPHINE
     Indication: PAIN
     Dosage: 60 MG, 2X/DAY
     Route: 048

REACTIONS (16)
  - Weight decreased [Unknown]
  - Oral pain [Not Recovered/Not Resolved]
  - Skin exfoliation [Not Recovered/Not Resolved]
  - Dehydration [Unknown]
  - Product use issue [Unknown]
  - Pain of skin [Not Recovered/Not Resolved]
  - Hypertension [Not Recovered/Not Resolved]
  - Pain [Recovered/Resolved]
  - Somnolence [Unknown]
  - Disease progression [Not Recovered/Not Resolved]
  - Dry mouth [Not Recovered/Not Resolved]
  - Erythema [Unknown]
  - Visual impairment [Not Recovered/Not Resolved]
  - Renal cell carcinoma [Not Recovered/Not Resolved]
  - Burning sensation [Unknown]
  - Hyperkeratosis [Unknown]

NARRATIVE: CASE EVENT DATE: 201601
